FAERS Safety Report 5821862-7 (Version None)
Quarter: 2008Q3

REPORT INFORMATION
  Report Type: 
  Country: None (occurrence: None)
  Receive Date: 20080722
  Receipt Date: 20080707
  Transmission Date: 20090109
  Serious: Yes (Death)
  Sender: FDA-Public Use
  Company Number: 14828

PATIENT
  Age: 62 Year
  Sex: Male

DRUGS (4)
  1. MORPHINE SULFATE [Suspect]
     Indication: PAIN MANAGEMENT
     Dosage: ORALLY
     Route: 048
     Dates: start: 20080307, end: 20080407
  2. HYDROCODONE BITARTRATE [Concomitant]
  3. UNSPECIFIED PROSTATE MEDICATION [Concomitant]
  4. GAMMA PROTEIN [Concomitant]

REACTIONS (1)
  - DEATH [None]
